FAERS Safety Report 9948137 (Version 1)
Quarter: 2014Q1

REPORT INFORMATION
  Report Type: Spontaneous
  Country: US (occurrence: None)
  Receive Date: 20140122
  Receipt Date: 20140122
  Transmission Date: 20141002
  Serious: Yes (Other)
  Sender: FDA-Public Use
  Company Number: AP356-00305-SPO-US

PATIENT
  Age: 61 Year
  Sex: Female
  Weight: 77.27 kg

DRUGS (3)
  1. BELVIQ [Suspect]
     Indication: WEIGHT CONTROL
     Route: 048
     Dates: start: 201310
  2. PROTONIX (PANTOPRAZOLE) [Concomitant]
  3. VITAMINS (VITAMINS NOS) [Concomitant]

REACTIONS (1)
  - Dizziness [None]
